FAERS Safety Report 10087978 (Version 2)
Quarter: 2014Q2

REPORT INFORMATION
  Report Type: Spontaneous
  Country: US (occurrence: US)
  Receive Date: 20140419
  Receipt Date: 20140507
  Transmission Date: 20141212
  Serious: Yes (Other)
  Sender: FDA-Public Use
  Company Number: US-AMGEN-USASP2014027013

PATIENT
  Age: 73 Year
  Sex: Female
  Weight: 47 kg

DRUGS (1)
  1. NPLATE [Suspect]
     Indication: PRODUCT USED FOR UNKNOWN INDICATION
     Dosage: 250 MUG, Q2WK
     Route: 065
     Dates: start: 2012, end: 201403

REACTIONS (4)
  - Myelofibrosis [Recovering/Resolving]
  - Biopsy bone marrow abnormal [Unknown]
  - Bone marrow failure [Unknown]
  - Platelet count decreased [Unknown]
